FAERS Safety Report 5053588-4 (Version None)
Quarter: 2006Q3

REPORT INFORMATION
  Report Type: 
  Country: None (occurrence: None)
  Receive Date: 20060718
  Receipt Date: 20060517
  Transmission Date: 20061208
  Serious: Yes (Other)
  Sender: FDA-Public Use
  Company Number: US-AVENTIS-200614448US

PATIENT
  Sex: Female
  Weight: 79.99 kg

DRUGS (7)
  1. ARAVA [Suspect]
     Indication: RHEUMATOID ARTHRITIS
     Route: 048
     Dates: start: 19970101, end: 20060508
  2. METHATREXATE [Suspect]
     Indication: RHEUMATOID ARTHRITIS
     Route: 048
     Dates: start: 20000101, end: 20060508
  3. PLAQUENIL [Concomitant]
     Indication: RHEUMATOID ARTHRITIS
     Dates: start: 19930101
  4. NSAID'S [Concomitant]
     Indication: RHEUMATOID ARTHRITIS
     Dosage: DOSE: UNK
     Dates: start: 19970101
  5. FOLIC ACID [Concomitant]
     Indication: RHEUMATOID ARTHRITIS
     Dates: start: 20000101
  6. RELAFEN [Concomitant]
  7. ZIAC [Concomitant]

REACTIONS (3)
  - DYSFUNCTIONAL UTERINE BLEEDING [None]
  - NON-HODGKIN'S LYMPHOMA [None]
  - UTERINE CANCER [None]
